FAERS Safety Report 10687284 (Version 3)
Quarter: 2015Q1

REPORT INFORMATION
  Report Type: Spontaneous
  Country: IT (occurrence: None)
  Receive Date: 20141230
  Receipt Date: 20150309
  Transmission Date: 20150720
  Serious: Yes (Hospitalization)
  Sender: FDA-Public Use
  Company Number: 2688227

PATIENT
  Age: 14 Year
  Sex: Female
  Weight: 52 kg

DRUGS (2)
  1. CYTARABINE. [Suspect]
     Active Substance: CYTARABINE
     Indication: ACUTE LYMPHOCYTIC LEUKAEMIA
     Dosage: 120 MG MILLIGRAM(S), UNKNOWN, INTRAVENOUS (NOT OTHERWISE SPECIFIED)?
     Route: 042
     Dates: start: 20141210, end: 20141213
  2. PURINETHOL [Suspect]
     Active Substance: MERCAPTOPURINE
     Indication: ACUTE LYMPHOCYTIC LEUKAEMIA
     Dosage: 100 MG MILLIGRAM (S), UNKNOWN, UNKNOWN?
     Dates: start: 20141209, end: 20141217

REACTIONS (1)
  - Hypertransaminasaemia [None]

NARRATIVE: CASE EVENT DATE: 20141217
